FAERS Safety Report 9563200 (Version 1)
Quarter: 2013Q3

REPORT INFORMATION
  Report Type: Spontaneous
  Country: US (occurrence: US)
  Receive Date: 20130927
  Receipt Date: 20130927
  Transmission Date: 20140515
  Serious: No
  Sender: FDA-Public Use
  Company Number: US-BRISTOL-MYERS SQUIBB COMPANY-18964841

PATIENT
  Age: 78 Year
  Sex: Female
  Weight: 67.12 kg

DRUGS (12)
  1. ONGLYZA TABS 5 MG [Suspect]
     Indication: BLOOD GLUCOSE INCREASED
  2. FUROSEMIDE [Concomitant]
  3. POTASSIUM CHLORIDE [Concomitant]
  4. LOSARTAN [Concomitant]
  5. LEVOTHYROXINE [Concomitant]
  6. ATORVASTATIN [Concomitant]
  7. DIAZEPAM [Concomitant]
     Dosage: CAN TAKE TWO IF NEEDED; USUALLY TAKES ONE QHS
  8. OMEPRAZOLE [Concomitant]
     Dosage: NORMALLY TAKES ONE EVERY 1-2 WKS WHEN EATING CHILI/TACOS OR TAKING MEDICATION THAT GAVE  HEARTBURN
  9. ASPIRIN [Concomitant]
  10. POTASSIUM [Concomitant]
     Dosage: 1DF=1PILL
  11. MULTIVITAMIN [Concomitant]
  12. SUCRALFATE [Concomitant]

REACTIONS (1)
  - Diarrhoea [Unknown]
